FAERS Safety Report 11135496 (Version 1)
Quarter: 2015Q2

REPORT INFORMATION
  Report Type: Spontaneous
  Country: US (occurrence: None)
  Receive Date: 20150522
  Receipt Date: 20150522
  Transmission Date: 20150821
  Serious: Yes (Other)
  Sender: FDA-Public Use
  Company Number: None

PATIENT
  Age: 42 Year
  Sex: Female
  Weight: 95.26 kg

DRUGS (2)
  1. DULOXETINE HCL [Suspect]
     Active Substance: DULOXETINE HYDROCHLORIDE
     Dosage: 2 CAPSULES, ONCE DAILY, TAKEN BY MOUTH
     Route: 048
     Dates: start: 20150427, end: 20150521
  2. DULOXETINE HCL [Suspect]
     Active Substance: DULOXETINE HYDROCHLORIDE
     Indication: DEPRESSION
     Dosage: 2 CAPSULES, ONCE DAILY, TAKEN BY MOUTH
     Route: 048
     Dates: start: 20150427, end: 20150521

REACTIONS (2)
  - Drug dispensing error [None]
  - Product packaging quantity issue [None]

NARRATIVE: CASE EVENT DATE: 20150427
